FAERS Safety Report 15029146 (Version 9)
Quarter: 2020Q1

REPORT INFORMATION
  Report Type: Report from Study
  Country: ES (occurrence: ES)
  Receive Date: 20180619
  Receipt Date: 20200327
  Transmission Date: 20200409
  Serious: Yes (Life-Threatening, Hospitalization)
  Sender: FDA-Public Use
  Company Number: ES-ROCHE-2140082

PATIENT
  Age: 69 Year
  Sex: Male
  Weight: 56 kg

DRUGS (25)
  1. ENOXAPARIN [Concomitant]
     Active Substance: ENOXAPARIN
     Indication: THROMBOPHLEBITIS
  2. EBASTINE [Concomitant]
     Active Substance: EBASTINE
     Indication: HYPERSENSITIVITY
     Route: 048
  3. SULFAMETHOXAZOLE/TRIMETHOPRIM [Concomitant]
     Active Substance: SULFAMETHOXAZOLE\TRIMETHOPRIM
     Indication: INFECTION
     Route: 042
     Dates: start: 20180612, end: 20180626
  4. ENOXAPARINE SODIQUE [Concomitant]
     Active Substance: ENOXAPARIN SODIUM
     Route: 042
     Dates: start: 20180620, end: 20180625
  5. URSODEOXYCHOLIC ACID [Concomitant]
     Active Substance: URSODIOL
     Route: 042
     Dates: start: 20180622, end: 20180625
  6. DEXCHLORPHENIRAMINE [Concomitant]
     Active Substance: DEXCHLORPHENIRAMINE
     Indication: PRURITUS
     Route: 048
     Dates: start: 20180623, end: 20180712
  7. DEXCHLORPHENIRAMINE [Concomitant]
     Active Substance: DEXCHLORPHENIRAMINE
     Dosage: MEDICATION DOSE UNIT: OTHER
     Route: 065
     Dates: start: 20180621
  8. RAMIPRIL. [Concomitant]
     Active Substance: RAMIPRIL
     Indication: HYPERTENSION
     Route: 048
     Dates: start: 2013
  9. ENOXAPARIN [Concomitant]
     Active Substance: ENOXAPARIN
     Indication: CEREBROVASCULAR ACCIDENT
     Route: 058
     Dates: start: 201711
  10. PARACETAMOL [Concomitant]
     Active Substance: ACETAMINOPHEN
     Indication: PAIN
     Route: 048
  11. BEMIPARIN [Concomitant]
     Active Substance: BEMIPARIN
     Indication: PROPHYLAXIS
     Route: 048
     Dates: start: 20180206
  12. ATEZOLIZUMAB. [Suspect]
     Active Substance: ATEZOLIZUMAB
     Indication: NON-SMALL CELL LUNG CANCER
     Dosage: MOST RECENT DOSE 1200 MG OF ATEZOLIZUMAB PRIOR TO THE ONSET OF LIVER TOXICITY, PANCREATIC TOXICITY A
     Route: 042
     Dates: start: 20171222
  13. EZETIMIBA [Concomitant]
     Active Substance: EZETIMIBE
     Indication: HYPERCHOLESTEROLAEMIA
     Route: 048
  14. PARACETAMOL [Concomitant]
     Active Substance: ACETAMINOPHEN
     Indication: THROMBOPHLEBITIS
     Route: 042
     Dates: start: 20180620, end: 20180623
  15. SULFAMETHOXAZOLE/TRIMETHOPRIM [Concomitant]
     Active Substance: SULFAMETHOXAZOLE\TRIMETHOPRIM
     Indication: PROPHYLAXIS
  16. PARACETAMOL [Concomitant]
     Active Substance: ACETAMINOPHEN
     Indication: PAIN PROPHYLAXIS
  17. BETAMETHASONE. [Concomitant]
     Active Substance: BETAMETHASONE
     Indication: RASH
     Route: 061
  18. EBASTINE [Concomitant]
     Active Substance: EBASTINE
     Indication: PRURITUS
  19. ATORVASTATIN [Concomitant]
     Active Substance: ATORVASTATIN
     Indication: HYPERCHOLESTEROLAEMIA
     Route: 048
  20. OSELTAMIVIR [Concomitant]
     Active Substance: OSELTAMIVIR
     Route: 065
     Dates: start: 20180125, end: 20180131
  21. ENALAPRIL [Concomitant]
     Active Substance: ENALAPRIL
     Indication: POLYURIA
     Route: 042
     Dates: start: 20180620, end: 20180625
  22. INSULIN [Concomitant]
     Active Substance: INSULIN NOS
     Route: 042
     Dates: start: 20180623, end: 20180623
  23. URSODEOXYCHOLIC ACID [Concomitant]
     Active Substance: URSODIOL
     Dosage: 13
     Route: 065
     Dates: start: 20180621
  24. OMEPRAZOL [OMEPRAZOLE] [Concomitant]
     Active Substance: OMEPRAZOLE
     Indication: GASTROINTESTINAL DISORDER PROPHYLAXIS
     Route: 048
     Dates: start: 20180622, end: 20180625
  25. DEXCHLORPHENIRAMINE [Concomitant]
     Active Substance: DEXCHLORPHENIRAMINE
     Route: 065
     Dates: start: 20180620, end: 20180625

REACTIONS (2)
  - Pancreatic toxicity [Recovered/Resolved]
  - Hepatotoxicity [Recovered/Resolved]

NARRATIVE: CASE EVENT DATE: 20180612
